FAERS Safety Report 15941652 (Version 1)
Quarter: 2019Q1

REPORT INFORMATION
  Report Type: Spontaneous
  Country: US (occurrence: US)
  Receive Date: 20190209
  Receipt Date: 20190209
  Transmission Date: 20190417
  Serious: Yes (Other)
  Sender: FDA-Public Use
  Company Number: None

PATIENT
  Age: 49 Year
  Sex: Female
  Weight: 63 kg

DRUGS (17)
  1. WELLBUTRIN [Concomitant]
     Active Substance: BUPROPION HYDROCHLORIDE
  2. LYRICA [Concomitant]
     Active Substance: PREGABALIN
  3. LAMICTAL [Concomitant]
     Active Substance: LAMOTRIGINE
  4. VITAMIN E [Concomitant]
     Active Substance: .ALPHA.-TOCOPHEROL
  5. IRON [Concomitant]
     Active Substance: IRON
  6. CLONAZEPAM. [Concomitant]
     Active Substance: CLONAZEPAM
  7. NORTRIPTYLINE [Concomitant]
     Active Substance: NORTRIPTYLINE
  8. VITAMIN D [Concomitant]
     Active Substance: CHOLECALCIFEROL
  9. MULTI VITAMIN [Concomitant]
     Active Substance: VITAMINS
  10. FISH OI [Concomitant]
  11. MAGNESIUM [Concomitant]
     Active Substance: MAGNESIUM
  12. PRILOSEC [Concomitant]
     Active Substance: OMEPRAZOLE MAGNESIUM
  13. LYRICA [Suspect]
     Active Substance: PREGABALIN
     Indication: FIBROMYALGIA
     Dosage: ?          QUANTITY:1 CAPSULE(S);?
     Route: 048
     Dates: start: 20091102, end: 20190208
  14. IBUPROFEN. [Concomitant]
     Active Substance: IBUPROFEN
  15. LIOTHYRONINE [Concomitant]
     Active Substance: LIOTHYRONINE
  16. XANAX [Concomitant]
     Active Substance: ALPRAZOLAM
  17. VITAMIN C [Concomitant]
     Active Substance: ASCORBIC ACID

REACTIONS (4)
  - Insurance issue [None]
  - Suicidal ideation [None]
  - Inability to afford medication [None]
  - Withdrawal syndrome [None]

NARRATIVE: CASE EVENT DATE: 20190208
